FAERS Safety Report 5114821-3 (Version None)
Quarter: 2006Q3

REPORT INFORMATION
  Report Type: 
  Country: None (occurrence: None)
  Receive Date: 20060922
  Receipt Date: 20060922
  Transmission Date: 20061208
  Serious: Yes (Life-Threatening)
  Sender: FDA-Public Use
  Company Number: None

PATIENT
  Age: 67 Year
  Sex: Male
  Weight: 95.2554 kg

DRUGS (1)
  1. EFUDEX [Suspect]
     Indication: PRECANCEROUS SKIN LESION
     Dosage: RUB ON AFFECTED AREA    TWICE   UNK
     Dates: start: 20060630, end: 20060707

REACTIONS (5)
  - ADRENAL DISORDER [None]
  - CEREBROVASCULAR ACCIDENT [None]
  - HEPATIC FUNCTION ABNORMAL [None]
  - HEPATIC LESION [None]
  - INFECTION PARASITIC [None]
